FAERS Safety Report 6728257-2 (Version None)
Quarter: 2010Q2

REPORT INFORMATION
  Report Type: 
  Country: None (occurrence: None)
  Receive Date: 20100517
  Receipt Date: 20100505
  Transmission Date: 20101027
  Serious: Yes (Hospitalization, Other)
  Sender: FDA-Public Use
  Company Number: US-GENZYME-MOZO-1000328

PATIENT
  Age: 38 Year
  Sex: Female

DRUGS (9)
  1. MOZOBIL [Suspect]
     Indication: HAEMATOPOIETIC STEM CELL MOBILISATION
     Dosage: 17112 MCG, QD
     Dates: start: 20100422, end: 20100425
  2. MOZOBIL [Suspect]
     Indication: CHRONIC MYELOID LEUKAEMIA
  3. NEUPOGEN [Concomitant]
     Indication: HAEMATOPOIETIC STEM CELL MOBILISATION
     Dosage: 780 MCG, QD
     Dates: start: 20100420, end: 20100425
  4. NEUPOGEN [Concomitant]
     Indication: CHRONIC MYELOID LEUKAEMIA
  5. FLUDARABINE [Concomitant]
     Indication: DRUG USE FOR UNKNOWN INDICATION
     Dosage: 80 MG, QD
     Dates: start: 20100423, end: 20100426
  6. BUSULFEX [Concomitant]
     Indication: DRUG USE FOR UNKNOWN INDICATION
     Dosage: 230 MG, QD
     Dates: start: 20100423, end: 20100426
  7. THYMOGLOBULIN [Suspect]
     Indication: STEM CELL TRANSPLANT
     Dosage: 46 MG, ONCE
     Route: 042
     Dates: start: 20100426, end: 20100426
  8. THYMOGLOBULIN [Suspect]
     Dosage: 138 MG, ONCE
     Route: 042
     Dates: start: 20100427, end: 20100427
  9. THYMOGLOBULIN [Suspect]
     Dosage: 184 MG, ONCE
     Route: 042
     Dates: start: 20100428, end: 20100428

REACTIONS (2)
  - CEREBRAL HAEMORRHAGE [None]
  - THROMBOCYTOPENIA [None]
